FAERS Safety Report 8121287-8 (Version None)
Quarter: 2012Q1

REPORT INFORMATION
  Report Type: 
  Country: None (occurrence: None)
  Receive Date: 20120206
  Receipt Date: 20120126
  Transmission Date: 20120608
  Serious: Yes (Hospitalization)
  Sender: FDA-Public Use
  Company Number: AUR-APL-2012-00705

PATIENT
  Age: 90 Year
  Sex: Female
  Weight: 64.85 kg

DRUGS (7)
  1. WARFARIN SODIUM [Concomitant]
  2. FUROSEMIDE [Concomitant]
  3. CORDARONE [Suspect]
     Indication: HEART RATE IRREGULAR
     Dates: end: 20091105
  4. METOPROLOL TARTRATE [Suspect]
     Indication: CARDIAC DISORDER
     Dosage: 3 DOSAGE FORMS (1.5 DOSAGE FORMS, 2 IN 1 D), ORAL
     Route: 048
  5. POTASSIUM CHLORIDE [Concomitant]
  6. DIGOXIN [Concomitant]
  7. SIMVASTATIN [Concomitant]

REACTIONS (6)
  - TREMOR [None]
  - DECREASED ACTIVITY [None]
  - MUSCULAR WEAKNESS [None]
  - ACTIVITIES OF DAILY LIVING IMPAIRED [None]
  - POSTURE ABNORMAL [None]
  - ASTHENIA [None]
